FAERS Safety Report 9659368 (Version 1)
Quarter: 2013Q4

REPORT INFORMATION
  Report Type: Spontaneous
  Country: US (occurrence: US)
  Receive Date: 20131031
  Receipt Date: 20131031
  Transmission Date: 20140711
  Serious: Yes (Hospitalization)
  Sender: FDA-Public Use
  Company Number: US-JNJFOC-20131015686

PATIENT
  Age: 35 Year
  Sex: Female

DRUGS (1)
  1. REMICADE [Suspect]
     Indication: PRODUCT USED FOR UNKNOWN INDICATION
     Dosage: 4 VIALS USED FOR IV DOSE PREPARATION
     Route: 042

REACTIONS (4)
  - Lethargy [Unknown]
  - Malaise [Unknown]
  - Pyrexia [Unknown]
  - Abdominal pain [Unknown]
